FAERS Safety Report 10832091 (Version 5)
Quarter: 2015Q3

REPORT INFORMATION
  Report Type: Report from Study
  Country: CN (occurrence: CN)
  Receive Date: 20150219
  Receipt Date: 20150806
  Transmission Date: 20151125
  Serious: Yes (Hospitalization, Other)
  Sender: FDA-Public Use
  Company Number: JP-GSKJP-B1034862AAA

PATIENT
  Age: 78 Year
  Sex: Male
  Weight: 62 kg

DRUGS (5)
  1. FLUTICASONE FUROATE [Suspect]
     Active Substance: FLUTICASONE FUROATE
     Indication: CHRONIC OBSTRUCTIVE PULMONARY DISEASE
     Dosage: UNK
     Route: 055
     Dates: start: 20131217
  2. AMINOPHYLLINE. [Concomitant]
     Active Substance: AMINOPHYLLINE
     Indication: CHRONIC OBSTRUCTIVE PULMONARY DISEASE
     Dosage: 100 MG, BID
     Route: 048
     Dates: start: 20131211
  3. NIMODIPINA [Concomitant]
     Indication: CEREBROVASCULAR ACCIDENT
     Dosage: 40 MG, BID
     Route: 048
     Dates: start: 20090610
  4. LIQUORICE [Concomitant]
     Active Substance: LICORICE
     Indication: NASOPHARYNGITIS
     Dosage: 112.5 MG, PRN
     Route: 048
     Dates: start: 20140821, end: 20140826
  5. AMLODIPINE [Concomitant]
     Active Substance: AMLODIPINE BESYLATE
     Indication: HYPERTENSION
     Dosage: 5 MG, OD
     Route: 048
     Dates: start: 20090610

REACTIONS (1)
  - Pneumonia [Recovered/Resolved]

NARRATIVE: CASE EVENT DATE: 20140830
